FAERS Safety Report 6936235-3 (Version None)
Quarter: 2010Q3

REPORT INFORMATION
  Report Type: 
  Country: None (occurrence: None)
  Receive Date: 20100823
  Receipt Date: 20100811
  Transmission Date: 20110219
  Serious: Yes (Life-Threatening)
  Sender: FDA-Public Use
  Company Number: JP-PFIZER INC-2010076632

PATIENT
  Age: 56 Year
  Sex: Male
  Weight: 64 kg

DRUGS (5)
  1. SUNITINIB MALATE [Suspect]
     Indication: GASTROINTESTINAL STROMAL TUMOUR
     Dosage: 50 MG, 1X/DAY
     Route: 048
     Dates: start: 20090113, end: 20090209
  2. OXYCONTIN [Concomitant]
     Indication: GASTROINTESTINAL STROMAL TUMOUR
     Dosage: 10 MG, 2X/DAY
     Route: 048
     Dates: start: 20081224
  3. NOVAMIN [Concomitant]
     Indication: GASTROINTESTINAL STROMAL TUMOUR
     Dosage: 5 MG, 2X/DAY
     Route: 048
     Dates: start: 20081224, end: 20090205
  4. LOXONIN [Concomitant]
     Indication: GASTROINTESTINAL STROMAL TUMOUR
     Dosage: 60 MG, 3X/DAY
     Route: 048
     Dates: start: 20081224, end: 20090205
  5. MUCOSTA [Concomitant]
     Indication: GASTROINTESTINAL STROMAL TUMOUR
     Dosage: 100 MG, 3X/DAY
     Route: 048
     Dates: start: 20081224

REACTIONS (3)
  - NEUTROPHIL COUNT DECREASED [None]
  - PLATELET COUNT DECREASED [None]
  - WHITE BLOOD CELL COUNT DECREASED [None]
